FAERS Safety Report 20138042 (Version 2)
Quarter: 2022Q1

REPORT INFORMATION
  Report Type: Report from Study
  Country: IT (occurrence: IT)
  Receive Date: 20211202
  Receipt Date: 20220217
  Transmission Date: 20220424
  Serious: Yes (Other)
  Sender: FDA-Public Use
  Company Number: IT-ABBVIE-21K-083-4181993-00

PATIENT
  Age: 75 Year
  Sex: Male

DRUGS (1)
  1. VENETOCLAX [Suspect]
     Active Substance: VENETOCLAX
     Indication: Mantle cell lymphoma
     Route: 048
     Dates: start: 202009, end: 20220214

REACTIONS (2)
  - Adenocarcinoma of colon [Unknown]
  - Metastases to liver [Unknown]
